FAERS Safety Report 7939190-2 (Version None)
Quarter: 2011Q4

REPORT INFORMATION
  Report Type: 
  Country: None (occurrence: None)
  Receive Date: 20111124
  Receipt Date: 20111122
  Transmission Date: 20120403
  Serious: Yes (Other)
  Sender: FDA-Public Use
  Company Number: DE-ROCHE-1015823

PATIENT
  Sex: Male

DRUGS (2)
  1. MABTHERA [Suspect]
     Indication: NON-HODGKIN'S LYMPHOMA
     Dosage: 6 CYCLES OF RITUXIMAB
     Route: 065
  2. BENDAMUSTINE [Suspect]
     Indication: NON-HODGKIN'S LYMPHOMA
     Route: 065

REACTIONS (1)
  - PERIPHERAL PARALYSIS [None]
